FAERS Safety Report 10711728 (Version 1)
Quarter: 2015Q1

REPORT INFORMATION
  Report Type: Spontaneous
  Country: DE (occurrence: DE)
  Receive Date: 20150114
  Receipt Date: 20150114
  Transmission Date: 20150721
  Serious: Yes (Hospitalization, Other)
  Sender: FDA-Public Use
  Company Number: DE-ABBVIE-14P-062-1249513-00

PATIENT
  Age: 61 Year
  Sex: Male
  Weight: 55 kg

DRUGS (14)
  1. DUODOPA [Suspect]
     Active Substance: CARBIDOPA\LEVODOPA
     Dosage: MD 10ML, CRD 1.8 ML/H, ED 2.6ML
     Route: 050
     Dates: start: 201406
  2. DUODOPA [Suspect]
     Active Substance: CARBIDOPA\LEVODOPA
     Dosage: MD 10.0 ML; CRD 2.8 ML/H; ED 2.6 ML
     Route: 050
     Dates: start: 20110707, end: 201406
  3. DOMPERIDONE [Concomitant]
     Active Substance: DOMPERIDONE
     Indication: PRODUCT USED FOR UNKNOWN INDICATION
     Dosage: 1-1-1-0
  4. MACGROGOL [Concomitant]
     Indication: PRODUCT USED FOR UNKNOWN INDICATION
  5. MADOPAR [Concomitant]
     Active Substance: BENSERAZIDE HYDROCHLORIDE\LEVODOPA
     Indication: PRODUCT USED FOR UNKNOWN INDICATION
     Dosage: 100/24   0-0-0-1
  6. MAGNESIUM VERLA [Concomitant]
     Active Substance: MAGNESIUM
     Indication: PRODUCT USED FOR UNKNOWN INDICATION
  7. PALLADON [Concomitant]
     Active Substance: HYDROMORPHONE
     Indication: PRODUCT USED FOR UNKNOWN INDICATION
     Dosage: 1-1-0-0
  8. QUETIAPINE [Concomitant]
     Active Substance: QUETIAPINE
     Indication: PRODUCT USED FOR UNKNOWN INDICATION
     Dosage: 100/25   0-0-0-2
  9. DUODOPA [Suspect]
     Active Substance: CARBIDOPA\LEVODOPA
     Indication: PARKINSON^S DISEASE
     Route: 050
     Dates: start: 20110705, end: 20110707
  10. PANTOZOL [Concomitant]
     Active Substance: PANTOPRAZOLE SODIUM
     Indication: PRODUCT USED FOR UNKNOWN INDICATION
     Dosage: 1-0-0
  11. NOVAMIN [Concomitant]
     Active Substance: PROCHLORPERAZINE MALEATE
     Indication: PRODUCT USED FOR UNKNOWN INDICATION
     Dosage: 1-0-1-0
  12. PALLADON [Concomitant]
     Active Substance: HYDROMORPHONE
     Dosage: 1-1-1-0
  13. RIVOTRIL [Concomitant]
     Active Substance: CLONAZEPAM
     Indication: PRODUCT USED FOR UNKNOWN INDICATION
     Dosage: 0-0-0-2
  14. AVALOX [Suspect]
     Active Substance: MOXIFLOXACIN HYDROCHLORIDE
     Indication: PRODUCT USED FOR UNKNOWN INDICATION
     Route: 065

REACTIONS (17)
  - General physical health deterioration [Unknown]
  - Diverticulum intestinal [Unknown]
  - Stoma site inflammation [Unknown]
  - Weight decreased [Unknown]
  - Complication of device insertion [Unknown]
  - Diarrhoea [Recovered/Resolved with Sequelae]
  - Large intestine polyp [Unknown]
  - Hyperkinesia [Unknown]
  - Renal cyst [Unknown]
  - Gastroenteritis [Unknown]
  - Osteoarthritis [Unknown]
  - Cachexia [Unknown]
  - Stoma site erythema [Unknown]
  - Gastric perforation [Unknown]
  - Medical device complication [Unknown]
  - Pain [Unknown]
  - Haemorrhoids [Unknown]

NARRATIVE: CASE EVENT DATE: 20110708
